FAERS Safety Report 4350884-0 (Version None)
Quarter: 2004Q2

REPORT INFORMATION
  Report Type: 
  Country: None (occurrence: None)
  Receive Date: 20040427
  Receipt Date: 20040415
  Transmission Date: 20050107
  Serious: Yes (Death, Life-Threatening)
  Sender: FDA-Public Use
  Company Number: 01P-163-0185420-00

PATIENT
  Age: 54 Year
  Sex: Female
  Weight: 69.4911 kg

DRUGS (20)
  1. HUMIRA [Suspect]
     Indication: RHEUMATOID ARTHRITIS
     Dosage: 2 IN 1 WK, SUBCUTANEOUS
     Route: 058
     Dates: start: 20000824, end: 20010618
  2. METHOTREXATE [Concomitant]
  3. LOSARTAN POTASSIUM [Concomitant]
  4. NORITHESTIRONE [Concomitant]
  5. ASCORBIC ACID [Concomitant]
  6. MULTIVITAMIN [Concomitant]
  7. ESTRATEST H.S. [Concomitant]
  8. PROGESTERONE [Concomitant]
  9. LORATADINE [Concomitant]
  10. CITALOPRAM HYDROBROMIDE [Concomitant]
  11. GABAPENTIN [Concomitant]
  12. OXYCODONE HCL [Concomitant]
  13. OXYCODONE [Concomitant]
  14. EPOGEN [Concomitant]
  15. CAPECITABINE [Concomitant]
  16. GEMCITABINE [Concomitant]
  17. OXYCODONE HCL [Concomitant]
  18. SENNA [Concomitant]
  19. CIPROFLOXACIN HYDROCHLORIDE [Concomitant]
  20. PERI-COLACE [Concomitant]

REACTIONS (24)
  - ABDOMINAL DISTENSION [None]
  - BLOOD PRESSURE SYSTOLIC INCREASED [None]
  - BREAST CANCER [None]
  - CELLULITIS [None]
  - DISEASE PROGRESSION [None]
  - DYSPNOEA [None]
  - DYSPNOEA EXERTIONAL [None]
  - DYSPNOEA PAROXYSMAL NOCTURNAL [None]
  - FATIGUE [None]
  - HEART RATE INCREASED [None]
  - HYPOAESTHESIA [None]
  - LACRIMATION INCREASED [None]
  - LIVER TENDERNESS [None]
  - MENTAL STATUS CHANGES [None]
  - METASTASES TO LYMPH NODES [None]
  - MUSCLE CRAMP [None]
  - OEDEMA [None]
  - ORTHOPNOEA [None]
  - PITTING OEDEMA [None]
  - PLEURAL EFFUSION [None]
  - PYREXIA [None]
  - RASH [None]
  - SKIN NODULE [None]
  - STEM CELL TRANSPLANT [None]
